FAERS Safety Report 6920759-9 (Version None)
Quarter: 2010Q3

REPORT INFORMATION
  Report Type: 
  Country: None (occurrence: None)
  Receive Date: 20100812
  Receipt Date: 20100803
  Transmission Date: 20110219
  Serious: Yes (Hospitalization)
  Sender: FDA-Public Use
  Company Number: US-JNJFOC-20100801365

PATIENT
  Sex: Female
  Weight: 113.4 kg

DRUGS (9)
  1. DURAGESIC-100 [Suspect]
     Indication: PAIN
     Route: 062
  2. DURAGESIC-100 [Suspect]
     Route: 062
  3. DURAGESIC-100 [Suspect]
     Route: 062
  4. LEXAPRO [Concomitant]
     Indication: DEPRESSION
     Route: 048
  5. SYNTHROID [Concomitant]
     Indication: THYROID DISORDER
     Route: 048
  6. OXYCODONE HCL [Concomitant]
     Indication: PAIN
     Dosage: 10/325 MG
     Route: 048
  7. SINGULAIR [Concomitant]
     Indication: LUNG DISORDER
     Route: 048
  8. ALBUTEROL [Concomitant]
     Indication: LUNG DISORDER
     Route: 055
  9. WELLBUTRIN [Concomitant]
     Indication: DEPRESSION
     Route: 048

REACTIONS (8)
  - BALANCE DISORDER [None]
  - CEREBRAL HAEMORRHAGE [None]
  - DRUG ADMINISTERED AT INAPPROPRIATE SITE [None]
  - EYE DISORDER [None]
  - HYPERTENSION [None]
  - PRODUCT QUALITY ISSUE [None]
  - TYPE 2 DIABETES MELLITUS [None]
  - WRONG TECHNIQUE IN DRUG USAGE PROCESS [None]
